FAERS Safety Report 12735582 (Version 1)
Quarter: 2016Q3

REPORT INFORMATION
  Report Type: Report from Study
  Country: CO (occurrence: CO)
  Receive Date: 20160912
  Receipt Date: 20160912
  Transmission Date: 20161109
  Serious: Yes (Hospitalization)
  Sender: FDA-Public Use
  Company Number: PHHY2016CO125302

PATIENT
  Sex: Female
  Weight: 53 kg

DRUGS (1)
  1. TASIGNA [Suspect]
     Active Substance: NILOTINIB
     Indication: CHRONIC MYELOID LEUKAEMIA
     Dosage: 200 MG, TID (THREE TIMES A DAY)
     Route: 048

REACTIONS (7)
  - Skin discolouration [Unknown]
  - Gastritis [Unknown]
  - Weight decreased [Unknown]
  - Hyperhidrosis [Unknown]
  - Anaemia [Unknown]
  - Pain in extremity [Unknown]
  - Incorrect drug administration duration [Unknown]
